FAERS Safety Report 6013221-1 (Version None)
Quarter: 2008Q4

REPORT INFORMATION
  Report Type: 
  Country: None (occurrence: None)
  Receive Date: 20081218
  Receipt Date: 20081218
  Transmission Date: 20090506
  Serious: No
  Sender: FDA-Public Use
  Company Number: None

PATIENT
  Age: 65 Year
  Sex: Male
  Weight: 95.2554 kg

DRUGS (1)
  1. FLOMAX [Suspect]
     Indication: NOCTURIA
     Dosage: 1 CAPSULE DAILY PO 2 1/2 MOS
     Route: 048
     Dates: start: 20081001, end: 20081217

REACTIONS (3)
  - BALANCE DISORDER [None]
  - FATIGUE [None]
  - TINNITUS [None]
